FAERS Safety Report 5114127-2 (Version None)
Quarter: 2006Q3

REPORT INFORMATION
  Report Type: 
  Country: None (occurrence: None)
  Receive Date: 20060925
  Receipt Date: 20030818
  Transmission Date: 20061208
  Serious: Yes (Life-Threatening, Other)
  Sender: FDA-Public Use
  Company Number: 2003AP02893

PATIENT
  Sex: Male

DRUGS (10)
  1. DIPRIVAN [Suspect]
     Indication: GENERAL ANAESTHESIA
     Route: 064
     Dates: start: 20030810, end: 20030810
  2. SUCCINYLCHOLINE CHLORIDE [Suspect]
     Indication: HYPOTONIA
     Route: 064
     Dates: start: 20030810, end: 20030810
  3. HORIZON [Concomitant]
     Route: 064
     Dates: start: 20030809, end: 20030810
  4. MAGNESOL [Concomitant]
     Route: 064
     Dates: start: 20030809, end: 20030809
  5. SUCCINYLCHOLINE CHLORIDE [Concomitant]
     Route: 064
     Dates: start: 20030810, end: 20030810
  6. CERCINE [Concomitant]
     Route: 064
     Dates: start: 20030809, end: 20030809
  7. LAUGHING GAS [Concomitant]
     Route: 064
     Dates: start: 20030810, end: 20030810
  8. SEVOFRANE [Concomitant]
     Route: 064
     Dates: start: 20030810, end: 20030810
  9. FENTANEST [Concomitant]
     Route: 064
     Dates: start: 20030810, end: 20030810
  10. MUSCULAX [Concomitant]
     Route: 064
     Dates: start: 20030810, end: 20030810

REACTIONS (16)
  - CAESAREAN SECTION [None]
  - CLONUS [None]
  - CONVULSION [None]
  - CONVULSION NEONATAL [None]
  - DRUG EXPOSURE DURING PREGNANCY [None]
  - HYPERTENSION [None]
  - HYPERTHERMIA MALIGNANT [None]
  - METABOLIC ACIDOSIS [None]
  - MUSCULOSKELETAL STIFFNESS [None]
  - MYOGLOBINURIA [None]
  - NEONATAL ASPHYXIA [None]
  - NEONATAL DISORDER [None]
  - PROTEINURIA [None]
  - PYREXIA [None]
  - TRISMUS [None]
  - URINARY RETENTION [None]
